FAERS Safety Report 16037730 (Version 1)
Quarter: 2019Q1

REPORT INFORMATION
  Report Type: Spontaneous
  Country: ES (occurrence: ES)
  Receive Date: 20190305
  Receipt Date: 20190305
  Transmission Date: 20190418
  Serious: Yes (Other)
  Sender: FDA-Public Use
  Company Number: ES-MYLANLABS-2019M1018879

PATIENT
  Age: 28 Year
  Sex: Male
  Weight: 69 kg

DRUGS (1)
  1. ISOTRETINOIN. [Suspect]
     Active Substance: ISOTRETINOIN
     Indication: DERMATITIS PAPILLARIS CAPILLITII
     Dosage: 20 MILLIGRAM, QD
     Route: 048
     Dates: start: 20180301, end: 20180420

REACTIONS (1)
  - Erectile dysfunction [Not Recovered/Not Resolved]

NARRATIVE: CASE EVENT DATE: 20180414
